FAERS Safety Report 6087160-4 (Version None)
Quarter: 2009Q1

REPORT INFORMATION
  Report Type: 
  Country: None (occurrence: None)
  Receive Date: 20090223
  Receipt Date: 20090211
  Transmission Date: 20090719
  Serious: Yes (Hospitalization, Other)
  Sender: FDA-Public Use
  Company Number: US-PFIZER INC-2008031336

PATIENT
  Sex: Female

DRUGS (1)
  1. LYRICA [Suspect]
     Indication: FIBROMYALGIA
     Dates: start: 20070901, end: 20071201

REACTIONS (6)
  - BACK PAIN [None]
  - OEDEMA [None]
  - PAIN [None]
  - RENAL DISORDER [None]
  - URINARY RETENTION [None]
  - WEIGHT INCREASED [None]
